FAERS Safety Report 6507058-4 (Version None)
Quarter: 2009Q4

REPORT INFORMATION
  Report Type: 
  Country: None (occurrence: None)
  Receive Date: 20091221
  Receipt Date: 20091208
  Transmission Date: 20100525
  Serious: Yes (Other)
  Sender: FDA-Public Use
  Company Number: PHHY2009JP46460

PATIENT
  Sex: Female
  Weight: 46 kg

DRUGS (12)
  1. ZOMETA [Suspect]
     Indication: METASTASES TO BONE
     Dosage: 4 MG, EVERY FOUR WEEKS
     Route: 042
     Dates: start: 20060801, end: 20090619
  2. XELODA [Concomitant]
     Indication: BREAST CANCER
     Dosage: 2400 MG, UNK
     Route: 048
     Dates: start: 20090126, end: 20090814
  3. XELODA [Concomitant]
     Dosage: UNK
     Dates: start: 20091124
  4. FEMARA [Concomitant]
     Indication: BREAST CANCER
     Dosage: 2.5 MG, UNK
     Route: 048
     Dates: start: 20061020
  5. HERCEPTIN [Concomitant]
     Indication: BREAST CANCER
     Dosage: UNK
     Route: 042
     Dates: start: 20050125, end: 20090710
  6. HERCEPTIN [Concomitant]
     Dosage: UNK
     Dates: start: 20090731
  7. CINAL [Concomitant]
  8. LOXONIN [Concomitant]
  9. BISOPROLOL FUMARATE [Concomitant]
  10. LENDORMIN [Concomitant]
     Dosage: UNK
  11. MUCOSTA [Concomitant]
  12. MYSER [Concomitant]

REACTIONS (10)
  - INCISIONAL DRAINAGE [None]
  - JAW DISORDER [None]
  - OSTEITIS [None]
  - OSTEONECROSIS [None]
  - PAIN IN JAW [None]
  - PALMAR-PLANTAR ERYTHRODYSAESTHESIA SYNDROME [None]
  - PIGMENTATION DISORDER [None]
  - SKIN CHAPPED [None]
  - SWELLING [None]
  - TOOTHACHE [None]
